FAERS Safety Report 6227692-9 (Version None)
Quarter: 2009Q2

REPORT INFORMATION
  Report Type: 
  Country: None (occurrence: None)
  Receive Date: 20090612
  Receipt Date: 20090605
  Transmission Date: 20091009
  Serious: Yes (Hospitalization)
  Sender: FDA-Public Use
  Company Number: US-BIOGENIDEC-2009BI017238

PATIENT
  Age: 58 Year
  Sex: Female

DRUGS (2)
  1. AVONEX [Suspect]
     Indication: MULTIPLE SCLEROSIS
     Route: 030
     Dates: start: 20081013, end: 20090501
  2. AVONEX [Suspect]
     Route: 030
     Dates: start: 20021001, end: 20071002

REACTIONS (2)
  - FATIGUE [None]
  - PULMONARY THROMBOSIS [None]
